FAERS Safety Report 5768044-5 (Version None)
Quarter: 2008Q2

REPORT INFORMATION
  Report Type: 
  Country: None (occurrence: None)
  Receive Date: 20080612
  Receipt Date: 20070605
  Transmission Date: 20081010
  Serious: No
  Sender: FDA-Public Use
  Company Number: US-ASTRAZENECA-2007UW09502

PATIENT
  Age: 71 Year
  Sex: Female

DRUGS (1)
  1. FASLODEX [Suspect]
     Route: 030

REACTIONS (1)
  - SENSORY DISTURBANCE [None]
